FAERS Safety Report 9315676 (Version 2)
Quarter: 2013Q2

REPORT INFORMATION
  Report Type: Spontaneous
  Country: GB (occurrence: GB)
  Receive Date: 20130529
  Receipt Date: 20130617
  Transmission Date: 20140414
  Serious: Yes (Other)
  Sender: FDA-Public Use
  Company Number: PHHY2013GB051852

PATIENT
  Sex: Female

DRUGS (1)
  1. RISPERIDONE [Suspect]
     Dosage: UNK
     Route: 048

REACTIONS (1)
  - Visual impairment [Unknown]
